FAERS Safety Report 8293726-3 (Version None)
Quarter: 2012Q2

REPORT INFORMATION
  Report Type: 
  Country: None (occurrence: None)
  Receive Date: 20120412
  Receipt Date: 20120402
  Transmission Date: 20120825
  Serious: Yes (Hospitalization)
  Sender: FDA-Public Use
  Company Number: 2012SP018434

PATIENT
  Age: 51 Year
  Sex: Female
  Weight: 62.6 kg

DRUGS (5)
  1. MORPHINE [Concomitant]
  2. SYLATRON [Suspect]
     Indication: METASTATIC MALIGNANT MELANOMA
     Dosage: 3 MCG/KG;QW;SC
     Route: 058
     Dates: start: 20120327, end: 20120327
  3. LACTULOSE [Concomitant]
  4. MS CONTIN [Concomitant]
  5. YERVOY [Suspect]
     Indication: METASTATIC MALIGNANT MELANOMA
     Dosage: 3 MG/KG;Q3W;IV
     Route: 042
     Dates: start: 20120327, end: 20120327

REACTIONS (3)
  - PARAESTHESIA [None]
  - SPINAL CORD COMPRESSION [None]
  - MUSCULAR WEAKNESS [None]
